FAERS Safety Report 25660905 (Version 1)
Quarter: 2025Q3

REPORT INFORMATION
  Report Type: Spontaneous
  Country: US (occurrence: US)
  Receive Date: 20250808
  Receipt Date: 20250808
  Transmission Date: 20251021
  Serious: No
  Sender: PHOTOCURE
  Company Number: US-PHOTOCURE ASA-PHCUS2025000002

PATIENT
  Sex: Female

DRUGS (4)
  1. CYSVIEW [Suspect]
     Active Substance: HEXAMINOLEVULINATE HYDROCHLORIDE
     Indication: Bladder cancer
     Dates: start: 2025, end: 2025
  2. CYSVIEW [Suspect]
     Active Substance: HEXAMINOLEVULINATE HYDROCHLORIDE
  3. CYSVIEW [Suspect]
     Active Substance: HEXAMINOLEVULINATE HYDROCHLORIDE
  4. CYSVIEW [Suspect]
     Active Substance: HEXAMINOLEVULINATE HYDROCHLORIDE

REACTIONS (1)
  - Hypersensitivity [Unknown]

NARRATIVE: CASE EVENT DATE: 20250101
